FAERS Safety Report 9216533 (Version 1)
Quarter: 2013Q1

REPORT INFORMATION
  Report Type: Spontaneous
  Country: US (occurrence: None)
  Receive Date: 20130220
  Receipt Date: 20130220
  Transmission Date: 20140127
  Serious: Yes (Other)
  Sender: FDA-Public Use
  Company Number: JPI-P-029773

PATIENT
  Age: 56 Year
  Sex: Female
  Weight: 152 kg

DRUGS (9)
  1. XYREM (500 MILLIGRAM/MILLILITERS, SOLUTION) (SODIUM OXYBATE) [Suspect]
     Indication: FIBROMYALGIA
     Route: 048
     Dates: start: 201002
  2. THYROID [Concomitant]
  3. LIOTHYRONINE SODIUM [Concomitant]
  4. LAMOTRIGINE [Concomitant]
  5. BENAZEPRIL [Concomitant]
  6. HORMONE REPLACEMENT [Concomitant]
  7. QUETIAPINE FUMARATE [Concomitant]
  8. HYDROCODONE AND ACETAMINOPHEN [Concomitant]
  9. TEMAZEPAM [Concomitant]

REACTIONS (7)
  - Fallopian tube disorder [None]
  - Mass [None]
  - Diarrhoea [None]
  - Dehydration [None]
  - Back pain [None]
  - Abdominal distension [None]
  - Abdominal pain [None]
